FAERS Safety Report 12969593 (Version 6)
Quarter: 2018Q1

REPORT INFORMATION
  Report Type: Report from Study
  Country: CA (occurrence: CA)
  Receive Date: 20161123
  Receipt Date: 20180206
  Transmission Date: 20180508
  Serious: Yes (Other)
  Sender: FDA-Public Use
  Company Number: CA-BRISTOL-MYERS SQUIBB COMPANY-BMS-2016-080522

PATIENT
  Age: 48 Year
  Sex: Female

DRUGS (3)
  1. MARVELON [Concomitant]
     Active Substance: DESOGESTREL\ETHINYL ESTRADIOL
     Indication: PRODUCT USED FOR UNKNOWN INDICATION
     Route: 065
  2. ABATACEPT [Suspect]
     Active Substance: ABATACEPT
     Indication: RHEUMATOID ARTHRITIS
     Dosage: 750 MG, Q4WK
     Route: 042
     Dates: start: 20110208
  3. PREDNISONE. [Concomitant]
     Active Substance: PREDNISONE
     Indication: PRODUCT USED FOR UNKNOWN INDICATION
     Route: 065

REACTIONS (20)
  - Haematochezia [Unknown]
  - Gastrointestinal pain [Unknown]
  - Arthralgia [Unknown]
  - Skin burning sensation [Unknown]
  - Constipation [Unknown]
  - Multiple sclerosis [Unknown]
  - Fibromyalgia [Unknown]
  - Secretion discharge [Unknown]
  - Sjogren^s syndrome [Unknown]
  - Sinusitis [Unknown]
  - Anxiety [Unknown]
  - Photosensitivity reaction [Unknown]
  - Heart rate increased [Unknown]
  - Raynaud^s phenomenon [Unknown]
  - Eye pruritus [Unknown]
  - Rheumatoid arthritis [Unknown]
  - Pelvic pain [Unknown]
  - Inflammation [Unknown]
  - Rash [Unknown]
  - Pain [Unknown]

NARRATIVE: CASE EVENT DATE: 20160125
